FAERS Safety Report 8043025-X (Version None)
Quarter: 2012Q1

REPORT INFORMATION
  Report Type: 
  Country: None (occurrence: None)
  Receive Date: 20120112
  Receipt Date: 20120109
  Transmission Date: 20120608
  Serious: Yes (Other)
  Sender: FDA-Public Use
  Company Number: PHEH2011US06487

PATIENT
  Sex: Female
  Weight: 49.887 kg

DRUGS (4)
  1. EXTAVIA [Suspect]
     Indication: MULTIPLE SCLEROSIS
     Dosage: 0.0625 MG, QOD
     Route: 058
  2. EXTAVIA [Suspect]
     Dosage: 0.125 MG, QOD
     Route: 058
  3. EXTAVIA [Suspect]
     Dosage: 0.25 MG, QOD
     Route: 058
  4. MORPHINE [Concomitant]
     Indication: PAIN

REACTIONS (15)
  - INFLUENZA LIKE ILLNESS [None]
  - HEADACHE [None]
  - PRESYNCOPE [None]
  - NAUSEA [None]
  - PARAESTHESIA [None]
  - DEPRESSION [None]
  - CRYING [None]
  - SYNCOPE [None]
  - PAIN [None]
  - DIZZINESS [None]
  - MYALGIA [None]
  - WEIGHT DECREASED [None]
  - DECREASED APPETITE [None]
  - CHILLS [None]
  - EATING DISORDER [None]
